FAERS Safety Report 11277367 (Version 5)
Quarter: 2016Q1

REPORT INFORMATION
  Report Type: Report from Study
  Country: US (occurrence: US)
  Receive Date: 20150716
  Receipt Date: 20160216
  Transmission Date: 20160525
  Serious: No
  Sender: FDA-Public Use
  Company Number: US-AMGEN-USASL2015068121

PATIENT
  Age: 67 Year
  Sex: Female

DRUGS (1)
  1. ENBREL [Suspect]
     Active Substance: ETANERCEPT
     Indication: RHEUMATOID ARTHRITIS
     Dosage: 50 MG, QWK
     Route: 065
     Dates: start: 20150622

REACTIONS (22)
  - Fatigue [Not Recovered/Not Resolved]
  - Sleep disorder [Not Recovered/Not Resolved]
  - Pyrexia [Unknown]
  - Peripheral swelling [Unknown]
  - Gingival recession [Recovered/Resolved]
  - Feeling abnormal [Unknown]
  - Feeling hot [Recovering/Resolving]
  - Drug dose omission [Recovered/Resolved]
  - Erythema [Recovering/Resolving]
  - Injection site erythema [Not Recovered/Not Resolved]
  - Condition aggravated [Unknown]
  - Injection site warmth [Not Recovered/Not Resolved]
  - Conjunctivitis [Unknown]
  - Eye swelling [Unknown]
  - Lymphadenopathy [Unknown]
  - Injection site swelling [Not Recovered/Not Resolved]
  - Pain [Not Recovered/Not Resolved]
  - Head discomfort [Unknown]
  - Malaise [Unknown]
  - Injection site reaction [Not Recovered/Not Resolved]
  - Eye infection [Unknown]
  - Musculoskeletal disorder [Unknown]

NARRATIVE: CASE EVENT DATE: 2015
